FAERS Safety Report 17022347 (Version 1)
Quarter: 2019Q4

REPORT INFORMATION
  Report Type: Report from Study
  Country: DE (occurrence: DE)
  Receive Date: 20191112
  Receipt Date: 20191112
  Transmission Date: 20200122
  Serious: Yes (Other)
  Sender: FDA-Public Use
  Company Number: DE-GLAXOSMITHKLINE-DE2019TSO204470

PATIENT
  Age: 68 Year
  Sex: Female

DRUGS (1)
  1. NIRAPARIB [Suspect]
     Active Substance: NIRAPARIB
     Indication: OVARIAN CANCER
     Dosage: 300 MG, QD (FIRST LINE MAINTENANCE (MAINTENANCE THERAPY FOLLOWING FIRST LINE TREATMENT))

REACTIONS (1)
  - Recurrent cancer [Unknown]

NARRATIVE: CASE EVENT DATE: 20191109
